FAERS Safety Report 9242440 (Version 1)
Quarter: 2013Q2

REPORT INFORMATION
  Report Type: Spontaneous
  Country: IT (occurrence: IT)
  Receive Date: 20130419
  Receipt Date: 20130419
  Transmission Date: 20140414
  Serious: Yes (Other)
  Sender: FDA-Public Use
  Company Number: IT-PFIZER INC-2013119196

PATIENT
  Age: 52 Year
  Sex: Female

DRUGS (1)
  1. AZITHROMYCIN [Suspect]
     Indication: COUGH
     Dosage: 500 MG, 1X/DAY
     Route: 048
     Dates: start: 20130312, end: 20130312

REACTIONS (4)
  - Dyspnoea [Recovering/Resolving]
  - Eyelid oedema [Recovering/Resolving]
  - Paraesthesia [Recovering/Resolving]
  - Tongue oedema [Recovering/Resolving]
